FAERS Safety Report 4753860-9 (Version None)
Quarter: 2005Q3

REPORT INFORMATION
  Report Type: 
  Country: None (occurrence: None)
  Receive Date: 20050826
  Receipt Date: 20050530
  Transmission Date: 20060218
  Serious: Yes (Other)
  Sender: FDA-Public Use
  Company Number: FR-GLAXOSMITHKLINE-B0383536A

PATIENT
  Age: 76 Year
  Sex: Female

DRUGS (2)
  1. CLAMOXYL [Suspect]
     Indication: URINARY TRACT INFECTION
     Dosage: 1G PER DAY
     Route: 048
     Dates: start: 20050526, end: 20050531
  2. AMLOR [Concomitant]
     Indication: HYPERTENSION
     Route: 048

REACTIONS (4)
  - ANAPHYLACTOID REACTION [None]
  - C-REACTIVE PROTEIN INCREASED [None]
  - RASH MORBILLIFORM [None]
  - RED BLOOD CELL SEDIMENTATION RATE INCREASED [None]
